FAERS Safety Report 4558072-X (Version None)
Quarter: 2005Q1

REPORT INFORMATION
  Report Type: 
  Country: None (occurrence: None)
  Receive Date: 20050121
  Receipt Date: 20040903
  Transmission Date: 20050727
  Serious: No
  Sender: FDA-Public Use
  Company Number: US-BRISTOL-MYERS SQUIBB COMPANY-12692869

PATIENT
  Age: 51 Year
  Sex: Female
  Weight: 82 kg

DRUGS (2)
  1. SERZONE [Suspect]
     Indication: DEPRESSION
     Dosage: DURATION: ^YEARS^
     Route: 048
     Dates: start: 20010501
  2. SERZONE [Suspect]
     Indication: SLEEP DISORDER
     Dosage: DURATION: ^YEARS^
     Route: 048
     Dates: start: 20010501

REACTIONS (1)
  - TONGUE DISORDER [None]
